FAERS Safety Report 23123587 (Version 1)
Quarter: 2023Q4

REPORT INFORMATION
  Report Type: Spontaneous
  Country: US (occurrence: US)
  Receive Date: 20231030
  Receipt Date: 20231030
  Transmission Date: 20240109
  Serious: Yes (Other)
  Sender: FDA-Public Use
  Company Number: US-NOVOPROD-1130510

PATIENT
  Age: 71 Year
  Sex: Female

DRUGS (1)
  1. NOVOLOG [Suspect]
     Active Substance: INSULIN ASPART
     Indication: Type 1 diabetes mellitus
     Dosage: 7 UNITS SLIDING SCALE
     Route: 058
     Dates: start: 202209

REACTIONS (6)
  - Patella fracture [Unknown]
  - Upper limb fracture [Unknown]
  - Pain [Unknown]
  - Injury [Unknown]
  - Blood glucose decreased [Recovered/Resolved]
  - Blood glucose increased [Recovered/Resolved]

NARRATIVE: CASE EVENT DATE: 20231016
